FAERS Safety Report 4702180-7 (Version None)
Quarter: 2005Q2

REPORT INFORMATION
  Report Type: 
  Country: None (occurrence: None)
  Receive Date: 20050628
  Receipt Date: 20050628
  Transmission Date: 20051028
  Serious: Yes (Other)
  Sender: FDA-Public Use
  Company Number: None

PATIENT
  Sex: Female
  Weight: 127.0072 kg

DRUGS (1)
  1. DEPO-PROVERA [Suspect]
     Indication: CONTRACEPTION
     Dosage: 150 MG    EVERY 3 MONTHS   INTRAMUSCU
     Route: 030
     Dates: start: 20000425, end: 20040125

REACTIONS (3)
  - ANOVULATORY CYCLE [None]
  - INFERTILITY [None]
  - MENSTRUATION IRREGULAR [None]
